FAERS Safety Report 10673975 (Version 5)
Quarter: 2015Q3

REPORT INFORMATION
  Report Type: Report from Study
  Country: US (occurrence: US)
  Receive Date: 20141224
  Receipt Date: 20150827
  Transmission Date: 20151125
  Serious: Yes (Life-Threatening, Hospitalization)
  Sender: FDA-Public Use
  Company Number: US-SA-2014SA177401

PATIENT
  Age: 56 Year
  Sex: Female

DRUGS (1)
  1. AUBAGIO [Suspect]
     Active Substance: TERIFLUNOMIDE
     Indication: MULTIPLE SCLEROSIS
     Route: 048
     Dates: start: 20141205

REACTIONS (5)
  - Fatigue [Unknown]
  - Alopecia [Unknown]
  - Thyroid cancer [Unknown]
  - Hepatic enzyme increased [Unknown]
  - Dry skin [Unknown]

NARRATIVE: CASE EVENT DATE: 201412
